FAERS Safety Report 10990977 (Version 1)
Quarter: 2015Q2

REPORT INFORMATION
  Report Type: Report from Study
  Country: HK (occurrence: HK)
  Receive Date: 20150406
  Receipt Date: 20150406
  Transmission Date: 20150821
  Serious: Yes (Other)
  Sender: FDA-Public Use
  Company Number: HK-BAXTER-2015BAX018550

PATIENT
  Sex: Female

DRUGS (7)
  1. METHOTREXATE [Suspect]
     Active Substance: METHOTREXATE
     Indication: GESTATIONAL TROPHOBLASTIC TUMOUR
     Dosage: DAY 3
     Route: 042
  2. HYDROXYUREA. [Suspect]
     Active Substance: HYDROXYUREA
     Indication: GESTATIONAL TROPHOBLASTIC TUMOUR
     Dosage: DAY 1 AND DAY 2
     Route: 048
  3. ACTINOMYCIN D [Suspect]
     Active Substance: DACTINOMYCIN
     Indication: GESTATIONAL TROPHOBLASTIC TUMOUR
     Dosage: DAY 5, 6 AND 7(MAXIMUM OF  0.5MG)
     Route: 040
  4. METHOTREXATE [Suspect]
     Active Substance: METHOTREXATE
     Dosage: DAY 3
     Route: 042
  5. ENDOXAN FOR INJ IG [Suspect]
     Active Substance: CYCLOPHOSPHAMIDE
     Indication: GESTATIONAL TROPHOBLASTIC TUMOUR
     Dosage: DAY 5
     Route: 042
  6. ENDOXAN FOR INJ IG [Suspect]
     Active Substance: CYCLOPHOSPHAMIDE
     Indication: OFF LABEL USE
  7. VINCRISTINE [Suspect]
     Active Substance: VINCRISTINE
     Indication: GESTATIONAL TROPHOBLASTIC TUMOUR
     Dosage: DAY 3 (MAXIMUM OF 2 MG)
     Route: 042

REACTIONS (1)
  - Disease recurrence [Recovered/Resolved]
